FAERS Safety Report 13076511 (Version 2)
Quarter: 2017Q1

REPORT INFORMATION
  Report Type: Report from Study
  Country: JP (occurrence: JP)
  Receive Date: 20161230
  Receipt Date: 20170310
  Transmission Date: 20170428
  Serious: Yes (Other)
  Sender: FDA-Public Use
  Company Number: JP-IPSEN BIOPHARMACEUTICALS, INC.-2016-11484

PATIENT
  Age: 60 Year
  Sex: Female

DRUGS (4)
  1. CALBLOCK [Concomitant]
     Active Substance: AZELNIDIPINE
     Route: 048
  2. SOMATULINE 90MG [Suspect]
     Active Substance: LANREOTIDE ACETATE
     Indication: ACROMEGALY
     Dosage: 90 MG
     Route: 058
     Dates: start: 20150616, end: 20151117
  3. CRESTOR [Concomitant]
     Active Substance: ROSUVASTATIN CALCIUM
     Route: 048
  4. HUMULIN 3/7 [Concomitant]
     Route: 058

REACTIONS (8)
  - Diarrhoea [Recovered/Resolved]
  - Faeces soft [Unknown]
  - Steatorrhoea [Unknown]
  - Faeces pale [Unknown]
  - Pancreatic insufficiency [Unknown]
  - Diabetes mellitus inadequate control [Recovered/Resolved]
  - Protein total decreased [Recovered/Resolved]
  - Weight decreased [Unknown]

NARRATIVE: CASE EVENT DATE: 201507
